FAERS Safety Report 7750820-0 (Version None)
Quarter: 2011Q3

REPORT INFORMATION
  Report Type: 
  Country: None (occurrence: None)
  Receive Date: 20110914
  Receipt Date: 20110912
  Transmission Date: 20111222
  Serious: Yes (Other)
  Sender: FDA-Public Use
  Company Number: US-NAPPMUNDI-USA-2004-0016371

PATIENT
  Sex: Female

DRUGS (1)
  1. OXYCONTIN [Suspect]
     Indication: PAIN
     Dosage: 160 MG, TID
     Route: 065

REACTIONS (7)
  - WEIGHT DECREASED [None]
  - VOMITING IN PREGNANCY [None]
  - UNINTENDED PREGNANCY [None]
  - MATERNAL EXPOSURE DURING PREGNANCY [None]
  - COMPLICATION OF PREGNANCY [None]
  - CERVICAL INCOMPETENCE [None]
  - DRUG WITHDRAWAL SYNDROME [None]
